FAERS Safety Report 20022688 (Version 4)
Quarter: 2021Q4

REPORT INFORMATION
  Report Type: Report from Study
  Country: CA (occurrence: CA)
  Receive Date: 20211102
  Receipt Date: 20211223
  Transmission Date: 20220303
  Serious: Yes (Hospitalization, Other)
  Sender: FDA-Public Use
  Company Number: CA-BAYER-2021A240585

PATIENT

DRUGS (2)
  1. EYLEA [Suspect]
     Active Substance: AFLIBERCEPT
     Indication: Diabetic retinal oedema
     Dosage: UNK
     Dates: start: 20191024
  2. EYLEA [Suspect]
     Active Substance: AFLIBERCEPT
     Indication: Retinal vein occlusion

REACTIONS (4)
  - Hospitalisation [Unknown]
  - Diabetic retinal oedema [Not Recovered/Not Resolved]
  - Lung carcinoma cell type unspecified stage IV [Unknown]
  - Dialysis [Unknown]

NARRATIVE: CASE EVENT DATE: 20210921
